FAERS Safety Report 25119545 (Version 1)
Quarter: 2025Q1

REPORT INFORMATION
  Report Type: Spontaneous
  Country: IN (occurrence: IN)
  Receive Date: 20250325
  Receipt Date: 20250325
  Transmission Date: 20250409
  Serious: Yes (Hospitalization, Other)
  Sender: SLATE RUN
  Company Number: IN-SLATERUN-2025SRLIT00032

PATIENT
  Age: 35 Year
  Sex: Male

DRUGS (2)
  1. DICYCLOMINE HYDROCHLORIDE [Suspect]
     Active Substance: DICYCLOMINE HYDROCHLORIDE
     Indication: Postoperative analgesia
     Route: 065
  2. ACETAMINOPHEN [Suspect]
     Active Substance: ACETAMINOPHEN
     Indication: Postoperative analgesia
     Route: 065

REACTIONS (5)
  - Drug dependence [Unknown]
  - Hypophagia [Unknown]
  - Sleep disorder [Unknown]
  - Dizziness [Unknown]
  - Incorrect product formulation administered [Unknown]
